FAERS Safety Report 13798571 (Version 6)
Quarter: 2018Q3

REPORT INFORMATION
  Report Type: Spontaneous
  Country: CO (occurrence: CO)
  Receive Date: 20170727
  Receipt Date: 20180829
  Transmission Date: 20181010
  Serious: Yes (Death, Hospitalization, Other)
  Sender: FDA-Public Use
  Company Number: CO-AEGERION PHARMACEUTICAL, INC-AEGR003061

PATIENT

DRUGS (6)
  1. MYALEPT [Suspect]
     Active Substance: METRELEPTIN
     Indication: CONGENITAL GENERALISED LIPODYSTROPHY
     Dosage: 2.5 MG, QD
     Route: 058
     Dates: start: 20170301, end: 20170330
  2. GEMFIBROZIL. [Concomitant]
     Active Substance: GEMFIBROZIL
     Indication: PRODUCT USED FOR UNKNOWN INDICATION
  3. METFORMIN [Concomitant]
     Active Substance: METFORMIN HYDROCHLORIDE
     Indication: PRODUCT USED FOR UNKNOWN INDICATION
  4. MYALEPT [Suspect]
     Active Substance: METRELEPTIN
     Dosage: UNK
     Route: 058
     Dates: end: 20180406
  5. LANTUS [Concomitant]
     Active Substance: INSULIN GLARGINE
     Indication: PRODUCT USED FOR UNKNOWN INDICATION
  6. APIDRA [Concomitant]
     Active Substance: INSULIN GLULISINE
     Indication: PRODUCT USED FOR UNKNOWN INDICATION

REACTIONS (20)
  - Mental disorder [Recovered/Resolved]
  - Hyperglycaemia [Fatal]
  - Metabolic disorder [Fatal]
  - Hypoglycaemia [Fatal]
  - Vomiting [Fatal]
  - Feeding disorder [Recovered/Resolved]
  - Nausea [Fatal]
  - Rash [Recovered/Resolved]
  - Diarrhoea [Recovered/Resolved]
  - Drug ineffective [Unknown]
  - Weight decreased [Fatal]
  - General physical health deterioration [Recovered/Resolved]
  - Therapy cessation [Not Recovered/Not Resolved]
  - Cachexia [Unknown]
  - Mastication disorder [Unknown]
  - Jaw disorder [Unknown]
  - Decreased appetite [Fatal]
  - Major depression [Recovered/Resolved]
  - Abdominal pain [Fatal]
  - Major depression [Fatal]

NARRATIVE: CASE EVENT DATE: 2017
